FAERS Safety Report 26207865 (Version 1)
Quarter: 2025Q4

REPORT INFORMATION
  Report Type: Spontaneous
  Country: JP (occurrence: JP)
  Receive Date: 20251229
  Receipt Date: 20251229
  Transmission Date: 20260118
  Serious: Yes (Hospitalization)
  Sender: AKEBIA THERAPEUTICS
  Company Number: JP-IQVIA-JT2025JP000278

PATIENT
  Age: 9 Decade
  Sex: Male

DRUGS (40)
  1. FERRIC CITRATE ANHYDROUS [Suspect]
     Active Substance: FERRIC CITRATE ANHYDROUS
     Indication: Iron deficiency anaemia
     Dosage: 250 MILLIGRAM, BID
     Route: 061
  2. ENARODUSTAT [Suspect]
     Active Substance: ENARODUSTAT
     Indication: Nephrogenic anaemia
     Dosage: 2 MILLIGRAM, QD
     Route: 061
     Dates: start: 20231215, end: 20250211
  3. ASPIRIN [Concomitant]
     Active Substance: ASPIRIN
     Indication: Angina pectoris
     Dosage: 100 MILLIGRAM, QD
     Route: 061
  4. ESAXERENONE [Concomitant]
     Active Substance: ESAXERENONE
     Indication: Essential hypertension
     Dosage: 2.5 MILLIGRAM, QD
     Route: 061
     Dates: end: 20251016
  5. AMIODARONE HYDROCHLORIDE [Concomitant]
     Active Substance: AMIODARONE HYDROCHLORIDE
     Indication: Atrial fibrillation
     Dosage: 100 MILLIGRAM, QD
     Route: 061
  6. EDOXABAN TOSYLATE [Concomitant]
     Active Substance: EDOXABAN TOSYLATE
     Indication: Atrial fibrillation
     Dosage: 30 MILLIGRAM, QD
     Route: 061
  7. LIPITOR [Concomitant]
     Active Substance: ATORVASTATIN CALCIUM
     Indication: Hyperlipidaemia
     Dosage: 10 MILLIGRAM, QD
     Route: 061
  8. RABEPRAZOLE SODIUM [Concomitant]
     Active Substance: RABEPRAZOLE SODIUM
     Indication: Gastrooesophageal reflux disease
     Dosage: 10 MILLIGRAM, QD
     Route: 061
  9. OMEGA-3-ACID ETHYL ESTERS [Concomitant]
     Active Substance: OMEGA-3-ACID ETHYL ESTERS
     Indication: Hyperlipidaemia
     Dosage: 2 GRAM, QD
     Route: 061
  10. NICORANDIL [Concomitant]
     Active Substance: NICORANDIL
     Indication: Angina pectoris
     Dosage: 5 MILLIGRAM, TID
     Route: 061
  11. ESFLURBIPROFEN\HERBALS [Concomitant]
     Active Substance: ESFLURBIPROFEN\HERBALS
     Indication: Spinal osteoarthritis
     Dosage: UNK
  12. LASIX [Concomitant]
     Active Substance: FUROSEMIDE
     Indication: Essential hypertension
     Dosage: 20 MILLIGRAM, BID, TABLET
     Route: 061
     Dates: end: 20250912
  13. LASIX [Concomitant]
     Active Substance: FUROSEMIDE
     Indication: Cardiac failure chronic
     Dosage: 20 MILLIGRAM, QD
     Dates: start: 20250822, end: 20250822
  14. LASIX [Concomitant]
     Active Substance: FUROSEMIDE
     Indication: Cardiac failure
     Dosage: 20 MILLIGRAM, QD
     Dates: start: 20250829, end: 20250829
  15. LASIX [Concomitant]
     Active Substance: FUROSEMIDE
     Dosage: 20 MILLIGRAM, BID
     Dates: start: 20250905, end: 20250905
  16. LASIX [Concomitant]
     Active Substance: FUROSEMIDE
     Dosage: 20 MILLIGRAM, BID
     Dates: start: 20250912, end: 20250916
  17. LASIX [Concomitant]
     Active Substance: FUROSEMIDE
     Dosage: 20 MILLIGRAM, BID
     Dates: start: 20251031, end: 20251105
  18. ENTRESTO [Concomitant]
     Active Substance: SACUBITRIL\VALSARTAN
     Indication: Cardiac failure chronic
     Dosage: 50 MILLIGRAM, BID
     Route: 061
     Dates: end: 20250417
  19. ENTRESTO [Concomitant]
     Active Substance: SACUBITRIL\VALSARTAN
     Dosage: 25 MILLIGRAM, BID
     Route: 061
     Dates: start: 20250418, end: 20250508
  20. ENTRESTO [Concomitant]
     Active Substance: SACUBITRIL\VALSARTAN
     Dosage: 25 MILLIGRAM, QD
     Route: 061
     Dates: start: 20250509, end: 20250912
  21. ENTRESTO [Concomitant]
     Active Substance: SACUBITRIL\VALSARTAN
     Dosage: 50 MILLIGRAM, BID
     Route: 061
     Dates: start: 20250913, end: 20251016
  22. ENTRESTO [Concomitant]
     Active Substance: SACUBITRIL\VALSARTAN
     Dosage: 25 MILLIGRAM, BID
     Route: 061
     Dates: start: 20251017, end: 20251030
  23. ENTRESTO [Concomitant]
     Active Substance: SACUBITRIL\VALSARTAN
     Dosage: 25 MILLIGRAM, QD
     Route: 061
     Dates: start: 20251031
  24. HALFDIGOXIN KY [Concomitant]
     Indication: Angina pectoris
     Dosage: 0.125 MILLIGRAM, QD
     Route: 061
  25. TOLVAPTAN [Concomitant]
     Active Substance: TOLVAPTAN
     Indication: Cardiac failure
     Dosage: 7.5 MILLIGRAM, QD
     Route: 061
     Dates: start: 20250206
  26. CARPERITIDE [Concomitant]
     Active Substance: CARPERITIDE
     Indication: Cardiac failure chronic
     Dosage: 1000 MICROGRAM, QD
     Dates: start: 20250829, end: 20250829
  27. CARPERITIDE [Concomitant]
     Active Substance: CARPERITIDE
     Indication: Cardiac failure
     Dosage: 1000 MICROGRAM, QD
     Dates: start: 20250905, end: 20250905
  28. CARPERITIDE [Concomitant]
     Active Substance: CARPERITIDE
     Dosage: 1000 MICROGRAM, QD
     Dates: start: 20250912, end: 20250912
  29. CARPERITIDE [Concomitant]
     Active Substance: CARPERITIDE
     Dosage: 1000 MICROGRAM, BID
     Dates: start: 20250913, end: 20250915
  30. CARPERITIDE [Concomitant]
     Active Substance: CARPERITIDE
     Dosage: 1000 MICROGRAM, QD
     Dates: start: 20250916, end: 20250916
  31. CARPERITIDE [Concomitant]
     Active Substance: CARPERITIDE
     Dosage: 1000 MICROGRAM, BID
     Dates: start: 20250917, end: 20250918
  32. CARPERITIDE [Concomitant]
     Active Substance: CARPERITIDE
     Dosage: 1000 MICROGRAM, QD
     Dates: start: 20250919, end: 20250919
  33. CARPERITIDE [Concomitant]
     Active Substance: CARPERITIDE
     Dosage: 2000 MICROGRAM, QD
     Dates: start: 20251101, end: 20251101
  34. TOLVAPTAN [Concomitant]
     Active Substance: TOLVAPTAN
     Indication: Cardiac failure chronic
     Dosage: 8 MILLIGRAM, QD
     Dates: start: 20250912, end: 20250917
  35. TOLVAPTAN [Concomitant]
     Active Substance: TOLVAPTAN
     Indication: Cardiac failure
  36. AZOSEMIDE [Concomitant]
     Active Substance: AZOSEMIDE
     Indication: Cardiac failure chronic
     Dosage: 30 MILLIGRAM, QD
     Route: 061
     Dates: start: 20250917, end: 20251107
  37. AZOSEMIDE [Concomitant]
     Active Substance: AZOSEMIDE
     Dosage: 60 MILLIGRAM, QD
     Route: 061
     Dates: start: 20251108
  38. EPLERENONE [Concomitant]
     Active Substance: EPLERENONE
     Indication: Essential hypertension
     Dosage: 50 MILLIGRAM, QD
     Route: 061
     Dates: start: 20250917
  39. JARDIANCE [Concomitant]
     Active Substance: EMPAGLIFLOZIN
     Indication: Cardiac failure chronic
     Dosage: 10 MILLIGRAM, QD
     Route: 061
     Dates: start: 20251031
  40. TAMSULOSIN HYDROCHLORIDE [Concomitant]
     Active Substance: TAMSULOSIN HYDROCHLORIDE
     Indication: Benign prostatic hyperplasia
     Dosage: 0.2 MILLIGRAM, QD
     Route: 061
     Dates: start: 20250206

REACTIONS (5)
  - Cardiac failure [Recovering/Resolving]
  - Cardiac failure [Recovering/Resolving]
  - Cardiac failure [Recovering/Resolving]
  - Dermatitis contact [Recovering/Resolving]
  - Constipation [Recovering/Resolving]

NARRATIVE: CASE EVENT DATE: 20250205
